FAERS Safety Report 9125438 (Version 1)
Quarter: 2013Q1

REPORT INFORMATION
  Report Type: Spontaneous
  Country: DE (occurrence: DE)
  Receive Date: 20130121
  Receipt Date: 20130121
  Transmission Date: 20140127
  Serious: Yes (Hospitalization)
  Sender: FDA-Public Use
  Company Number: DE-AMGEN-DEUSP2013004118

PATIENT
  Age: 65 Year
  Sex: Female

DRUGS (1)
  1. ENBREL [Suspect]
     Indication: PRODUCT USED FOR UNKNOWN INDICATION
     Dosage: 50 MG, ONCE WEEKLY
     Dates: start: 20111112, end: 20120130

REACTIONS (4)
  - Road traffic accident [Recovered/Resolved]
  - Pelvic fracture [Recovered/Resolved]
  - Comminuted fracture [Recovered/Resolved]
  - Procedural haemorrhage [Recovered/Resolved]
